FAERS Safety Report 10197289 (Version 1)
Quarter: 2014Q2

REPORT INFORMATION
  Report Type: Spontaneous
  Country: JP (occurrence: JP)
  Receive Date: 20140527
  Receipt Date: 20140527
  Transmission Date: 20141212
  Serious: Yes (Hospitalization)
  Sender: FDA-Public Use
  Company Number: JP-GLAXOSMITHKLINE-B0996520A

PATIENT
  Age: 62 Year
  Sex: Female

DRUGS (3)
  1. LAMICTAL [Suspect]
     Indication: BIPOLAR II DISORDER
     Route: 048
     Dates: start: 2012
  2. LAMICTAL [Suspect]
     Indication: BIPOLAR II DISORDER
     Dosage: 200MG TWICE PER DAY
     Route: 048
  3. INSULIN [Concomitant]
     Route: 058

REACTIONS (8)
  - Suicide attempt [Recovering/Resolving]
  - Suicide attempt [Unknown]
  - Suicide attempt [Unknown]
  - Irritability [Unknown]
  - Euphoric mood [Not Recovered/Not Resolved]
  - Restlessness [Unknown]
  - Affect lability [Unknown]
  - Intentional overdose [Unknown]
